FAERS Safety Report 4847280-6 (Version None)
Quarter: 2005Q4

REPORT INFORMATION
  Report Type: 
  Country: None (occurrence: None)
  Receive Date: 20051205
  Receipt Date: 20051121
  Transmission Date: 20060501
  Serious: Yes (Other)
  Sender: FDA-Public Use
  Company Number: 2005134737

PATIENT
  Age: 47 Year
  Sex: Female
  Weight: 74.3899 kg

DRUGS (3)
  1. COOL MINT LISTERINE (MENTHOL, METHYL SALICYLATE, EUCALYPTOL, THYMOL) [Suspect]
     Indication: DENTAL DISORDER PROPHYLAXIS
     Dosage: 2 TSP ONCE, ORAL
     Route: 048
     Dates: start: 20050922, end: 20050922
  2. LOSARTAN POTASSIUM [Concomitant]
  3. LEVOTHYROXINE SODIUM [Concomitant]

REACTIONS (7)
  - DYSPHAGIA [None]
  - DYSPNOEA [None]
  - GLOSSITIS [None]
  - LYMPHADENOPATHY [None]
  - ORAL SOFT TISSUE DISORDER [None]
  - PHARYNGOLARYNGEAL PAIN [None]
  - SENSATION OF HEAVINESS [None]
